FAERS Safety Report 8563333-3 (Version None)
Quarter: 2012Q3

REPORT INFORMATION
  Report Type: 
  Country: None (occurrence: None)
  Receive Date: 20120802
  Receipt Date: 20120730
  Transmission Date: 20120928
  Serious: No
  Sender: FDA-Public Use
  Company Number: US-AMGEN-USASP2012042317

PATIENT
  Age: 53 Year
  Sex: Female
  Weight: 79.365 kg

DRUGS (1)
  1. ENBREL [Suspect]
     Indication: PSORIASIS
     Dosage: UNK
     Dates: start: 20111221, end: 20120301

REACTIONS (2)
  - PSORIASIS [None]
  - DRUG EFFECT DECREASED [None]
